FAERS Safety Report 9970118 (Version 1)
Quarter: 2014Q1

REPORT INFORMATION
  Report Type: Report from Study
  Country: US (occurrence: US)
  Receive Date: 20140306
  Receipt Date: 20140306
  Transmission Date: 20141002
  Serious: No
  Sender: FDA-Public Use
  Company Number: PHEH2014US004081

PATIENT
  Sex: Male

DRUGS (9)
  1. TASIGNA [Suspect]
     Indication: CHRONIC MYELOID LEUKAEMIA
     Dosage: 200 MG, UNK
     Dates: start: 201212
  2. TASIGNA [Suspect]
     Dosage: 200 MG, UNK
  3. LEVEMIR [Concomitant]
     Dosage: UNK UKN, UNK
  4. HUMALOG [Concomitant]
     Dosage: UNK UKN, UNK
  5. CITALOPRAM [Concomitant]
     Dosage: UNK UKN, UNK
  6. PRAVASTATIN [Concomitant]
     Dosage: UNK UKN, UNK
  7. LISINOPRIL [Concomitant]
     Dosage: UNK UKN, UNK
  8. VITAMIN B [Concomitant]
     Dosage: UNK UKN, UNK
  9. FISH OIL [Concomitant]
     Dosage: UNK UKN, UNK

REACTIONS (1)
  - White blood cell count increased [Unknown]
